FAERS Safety Report 7404318-X (Version None)
Quarter: 2011Q2

REPORT INFORMATION
  Report Type: 
  Country: None (occurrence: None)
  Receive Date: 20110408
  Receipt Date: 20110331
  Transmission Date: 20111010
  Serious: Yes (Hospitalization)
  Sender: FDA-Public Use
  Company Number: GB-ROCHE-763948

PATIENT
  Sex: Female
  Weight: 70 kg

DRUGS (3)
  1. CORTICOSTEROID NOS [Concomitant]
     Route: 048
  2. METHOTREXATE [Concomitant]
     Route: 048
  3. TOCILIZUMAB [Suspect]
     Dosage: 560 MG
     Route: 042
     Dates: start: 20101230

REACTIONS (1)
  - CEREBRAL HAEMORRHAGE [None]
